FAERS Safety Report 7421849-7 (Version None)
Quarter: 2011Q2

REPORT INFORMATION
  Report Type: 
  Country: None (occurrence: None)
  Receive Date: 20110418
  Receipt Date: 20110414
  Transmission Date: 20111010
  Serious: Yes (Hospitalization)
  Sender: FDA-Public Use
  Company Number: JP-PFIZER INC-2011082669

PATIENT
  Age: 85 Year
  Sex: Female

DRUGS (2)
  1. OPALMON [Concomitant]
     Indication: BACK PAIN
     Route: 048
  2. LYRICA [Suspect]
     Indication: BACK PAIN
     Dosage: 150 MG PER DAY AFTER MEAL
     Route: 048
     Dates: end: 20110401

REACTIONS (2)
  - SOMNOLENCE [None]
  - PNEUMONIA ASPIRATION [None]
